FAERS Safety Report 7442118-5 (Version None)
Quarter: 2011Q2

REPORT INFORMATION
  Report Type: 
  Country: None (occurrence: None)
  Receive Date: 20110428
  Receipt Date: 20110415
  Transmission Date: 20111010
  Serious: Yes (Other)
  Sender: FDA-Public Use
  Company Number: PHHY2011JP28777

PATIENT
  Age: 78 Year
  Sex: Female

DRUGS (2)
  1. LOXONIN [Concomitant]
  2. TEGRETOL [Suspect]
     Indication: TRIGEMINAL NEURALGIA
     Route: 048

REACTIONS (1)
  - NO ADVERSE EVENT [None]
